FAERS Safety Report 7437625-5 (Version None)
Quarter: 2011Q2

REPORT INFORMATION
  Report Type: 
  Country: None (occurrence: None)
  Receive Date: 20110421
  Receipt Date: 20110421
  Transmission Date: 20111010
  Serious: No
  Sender: FDA-Public Use
  Company Number: None

PATIENT
  Age: 68 Year
  Sex: Male
  Weight: 116 kg

DRUGS (4)
  1. FENTANYL [Suspect]
     Indication: ANAESTHESIA PROCEDURE
     Dosage: 100 MCG ONCE IV
     Route: 042
     Dates: start: 20110328, end: 20110328
  2. FENTANYL [Suspect]
     Indication: SURGERY
     Dosage: 100 MCG ONCE IV
     Route: 042
     Dates: start: 20110328, end: 20110328
  3. HYDROMORPHONE HCL [Suspect]
     Indication: ANAESTHESIA PROCEDURE
     Dosage: 0.5 MG OTHER IV
     Route: 042
     Dates: start: 20110328, end: 20110328
  4. HYDROMORPHONE HCL [Suspect]
     Indication: SURGERY
     Dosage: 0.5 MG OTHER IV
     Route: 042
     Dates: start: 20110328, end: 20110328

REACTIONS (1)
  - HYPOTENSION [None]
